FAERS Safety Report 7524008-2 (Version None)
Quarter: 2011Q2

REPORT INFORMATION
  Report Type: 
  Country: None (occurrence: None)
  Receive Date: 20110604
  Receipt Date: 20110520
  Transmission Date: 20111010
  Serious: Yes (Hospitalization)
  Sender: FDA-Public Use
  Company Number: GB-WATSON-2011-06812

PATIENT
  Age: 43 Year
  Sex: Male
  Weight: 72.5 kg

DRUGS (4)
  1. RISPERIDONE [Suspect]
     Indication: SCHIZOAFFECTIVE DISORDER
     Dosage: 4 MG, QPM
     Route: 048
     Dates: start: 20101223, end: 20110117
  2. VALPROATE SODIUM [Suspect]
     Indication: PRODUCT USED FOR UNKNOWN INDICATION
     Dosage: 1 G, BID
  3. VALPROATE SODIUM [Suspect]
     Dosage: 500 MG, BID
  4. RISPERIDONE [Suspect]
     Dosage: 2 MG, QPM

REACTIONS (1)
  - PRIAPISM [None]
